FAERS Safety Report 9180838 (Version 1)
Quarter: 2013Q1

REPORT INFORMATION
  Report Type: Spontaneous
  Country: US (occurrence: US)
  Receive Date: 20130322
  Receipt Date: 20130322
  Transmission Date: 20140127
  Serious: Yes (Hospitalization, Other)
  Sender: FDA-Public Use
  Company Number: US-INCYTE CORPORATION-2013IN000517

PATIENT
  Age: 61 Year
  Sex: Male

DRUGS (2)
  1. JAKAFI [Suspect]
     Indication: MYELOFIBROSIS
     Dosage: 20 MG, BID
     Route: 048
     Dates: start: 201208, end: 20130226
  2. PREDNISONE [Concomitant]
     Dosage: 20 MG, BID

REACTIONS (2)
  - Dyspnoea [Unknown]
  - Haemoglobin decreased [Unknown]
